FAERS Safety Report 24992260 (Version 2)
Quarter: 2025Q1

REPORT INFORMATION
  Report Type: Spontaneous
  Country: ES (occurrence: ES)
  Receive Date: 20250220
  Receipt Date: 20250226
  Transmission Date: 20250409
  Serious: Yes (Other)
  Sender: GILEAD
  Company Number: None

PATIENT
  Age: 61 Year
  Sex: Male
  Weight: 73 kg

DRUGS (1)
  1. YESCARTA [Suspect]
     Active Substance: AXICABTAGENE CILOLEUCEL
     Indication: Diffuse large B-cell lymphoma
     Route: 042
     Dates: start: 20241230, end: 20241230

REACTIONS (3)
  - Pancytopenia [Recovering/Resolving]
  - Cytokine release syndrome [Recovered/Resolved]
  - Tremor [Recovered/Resolved]

NARRATIVE: CASE EVENT DATE: 20250103
